FAERS Safety Report 9308588 (Version 1)
Quarter: 2013Q2

REPORT INFORMATION
  Report Type: Spontaneous
  Country: CN (occurrence: CN)
  Receive Date: 20130524
  Receipt Date: 20130524
  Transmission Date: 20140414
  Serious: Yes (Hospitalization)
  Sender: FDA-Public Use
  Company Number: CN-JNJFOC-20130510169

PATIENT
  Age: 3 Year
  Sex: Female

DRUGS (2)
  1. NIZORAL [Suspect]
     Indication: FUNGAL INFECTION
     Route: 048
     Dates: start: 201209, end: 201209
  2. LEVOFLOXACIN [Suspect]
     Indication: BACTERIAL INFECTION
     Route: 048
     Dates: end: 201209

REACTIONS (4)
  - Hepatic function abnormal [Recovered/Resolved]
  - Decreased appetite [Unknown]
  - Fatigue [Unknown]
  - Chromaturia [Unknown]
